APPROVED DRUG PRODUCT: SULINDAC
Active Ingredient: SULINDAC
Strength: 150MG
Dosage Form/Route: TABLET;ORAL
Application: A073262 | Product #002
Applicant: EPIC PHARMA LLC
Approved: Sep 6, 1991 | RLD: No | RS: No | Type: DISCN